FAERS Safety Report 6871281-X (Version None)
Quarter: 2010Q3

REPORT INFORMATION
  Report Type: 
  Country: None (occurrence: None)
  Receive Date: 20100723
  Receipt Date: 20100719
  Transmission Date: 20110219
  Serious: Yes (Death, Disabling)
  Sender: FDA-Public Use
  Company Number: US-CELGENEUS-163-21880-10050923

PATIENT
  Sex: Male

DRUGS (3)
  1. REVLIMID [Suspect]
     Indication: MULTIPLE MYELOMA
     Route: 048
     Dates: start: 20100405, end: 20100101
  2. DEXAMETHASONE [Concomitant]
     Indication: MULTIPLE MYELOMA
     Route: 065
     Dates: start: 20100405
  3. DANAZOL [Concomitant]
     Indication: THROMBOCYTOPENIA
     Route: 048
     Dates: start: 20100501

REACTIONS (2)
  - BEDRIDDEN [None]
  - MULTIPLE MYELOMA [None]
